FAERS Safety Report 24749745 (Version 2)
Quarter: 2025Q1

REPORT INFORMATION
  Report Type: Spontaneous
  Country: US (occurrence: US)
  Receive Date: 20241218
  Receipt Date: 20250101
  Transmission Date: 20250408
  Serious: No
  Sender: BIOGEN
  Company Number: US-BIOGEN-2024BI01294090

PATIENT
  Age: 77 Year
  Sex: Male

DRUGS (2)
  1. QALSODY [Suspect]
     Active Substance: TOFERSEN
     Indication: Product used for unknown indication
     Route: 050
     Dates: start: 20241202
  2. QALSODY [Suspect]
     Active Substance: TOFERSEN
     Route: 050
     Dates: start: 20241222

REACTIONS (4)
  - Procedural pain [Unknown]
  - Headache [Unknown]
  - Pyrexia [Unknown]
  - Tinnitus [Unknown]

NARRATIVE: CASE EVENT DATE: 20241202
